FAERS Safety Report 9861387 (Version 11)
Quarter: 2014Q2

REPORT INFORMATION
  Report Type: Spontaneous
  Country: CA (occurrence: CA)
  Receive Date: 20140203
  Receipt Date: 20140617
  Transmission Date: 20141212
  Serious: Yes (Other)
  Sender: FDA-Public Use
  Company Number: CA-ROCHE-1342540

PATIENT
  Age: 53 Year
  Sex: Male
  Weight: 140.74 kg

DRUGS (13)
  1. XOLAIR [Suspect]
     Indication: ASTHMA
     Route: 058
     Dates: start: 20140108
  2. XOLAIR [Suspect]
     Route: 058
     Dates: start: 20140127
  3. XOLAIR [Suspect]
     Route: 058
     Dates: start: 20140212
  4. XOLAIR [Suspect]
     Route: 058
     Dates: start: 20140224
  5. XOLAIR [Suspect]
     Route: 058
     Dates: start: 20140310
  6. XOLAIR [Suspect]
     Route: 058
     Dates: start: 20140324
  7. XOLAIR [Suspect]
     Route: 058
     Dates: start: 20140421
  8. XOLAIR [Suspect]
     Route: 058
     Dates: start: 20140507
  9. XOLAIR [Suspect]
     Route: 058
     Dates: start: 20140602, end: 20140602
  10. SYMBICORT [Concomitant]
  11. SINGULAIR [Concomitant]
  12. SPIRIVA [Concomitant]
  13. VENTOLIN [Concomitant]

REACTIONS (10)
  - Blood pressure increased [Not Recovered/Not Resolved]
  - Wheezing [Unknown]
  - Respiratory tract congestion [Unknown]
  - Nasal congestion [Unknown]
  - Cough [Unknown]
  - Respiratory disorder [Unknown]
  - Body temperature decreased [Not Recovered/Not Resolved]
  - Rales [Unknown]
  - Seasonal allergy [Unknown]
  - Drug ineffective [Unknown]
